FAERS Safety Report 5467181-2 (Version None)
Quarter: 2007Q3

REPORT INFORMATION
  Report Type: 
  Country: None (occurrence: None)
  Receive Date: 20070920
  Receipt Date: 20070904
  Transmission Date: 20080115
  Serious: Yes (Death)
  Sender: FDA-Public Use
  Company Number: 2007US001422

PATIENT
  Age: 64 Year
  Sex: Male

DRUGS (2)
  1. AMBISOME [Suspect]
     Indication: DRUG USE FOR UNKNOWN INDICATION
     Dosage: 300 MG
     Dates: start: 20050831, end: 20050911
  2. VORICONAZOLE(VORICONAZOLE) [Suspect]
     Indication: DRUG USE FOR UNKNOWN INDICATION
     Dates: start: 20050904, end: 20050909

REACTIONS (2)
  - CEREBRAL TOXOPLASMOSIS [None]
  - HEPATOTOXICITY [None]
